FAERS Safety Report 21154202 (Version 2)
Quarter: 2022Q4

REPORT INFORMATION
  Report Type: Spontaneous
  Country: US (occurrence: US)
  Receive Date: 20220801
  Receipt Date: 20221019
  Transmission Date: 20230113
  Serious: Yes (Other)
  Sender: FDA-Public Use
  Company Number: US-NOVOPROD-942279

PATIENT
  Age: 54 Year
  Sex: Female

DRUGS (2)
  1. VICTOZA [Suspect]
     Active Substance: LIRAGLUTIDE
     Indication: Type 2 diabetes mellitus
     Dosage: 1.8 MG
     Route: 058
     Dates: start: 20180720
  2. METFORMIN [Concomitant]
     Active Substance: METFORMIN HYDROCHLORIDE
     Indication: Type 2 diabetes mellitus
     Dosage: UNK

REACTIONS (4)
  - Blood glucose increased [Recovered/Resolved]
  - Device leakage [Unknown]
  - Device breakage [Unknown]
  - Product dose omission in error [Recovered/Resolved]

NARRATIVE: CASE EVENT DATE: 20220718
